FAERS Safety Report 6722797-8 (Version None)
Quarter: 2010Q2

REPORT INFORMATION
  Report Type: 
  Country: None (occurrence: None)
  Receive Date: 20100512
  Receipt Date: 20100512
  Transmission Date: 20101027
  Serious: Yes (Disabling)
  Sender: FDA-Public Use
  Company Number: None

PATIENT
  Sex: Female
  Weight: 96.4 kg

DRUGS (19)
  1. QUETIAPINE [Suspect]
     Indication: AGGRESSION
     Dosage: FROM 100 MG/DAY TO 1000 MG DAY ORAL
     Route: 048
     Dates: start: 20050707
  2. PREDNISONE [Suspect]
     Indication: ANAEMIA HAEMOLYTIC AUTOIMMUNE
     Dosage: FROM 60 MG/DAY TO 5 MG/DAY ORAL
     Route: 048
     Dates: start: 20090512, end: 20090709
  3. PAPLIPERIDONE [Concomitant]
  4. DIVALPROEX SODIUM [Concomitant]
  5. AMITRIPTYLINE [Concomitant]
  6. PANTOPRAZOLE [Concomitant]
  7. LEVOTHYROXINE SODIUM [Concomitant]
  8. OLANZAPINE [Concomitant]
  9. OXCARBAZEPINE [Concomitant]
  10. ZIPRASIDONE HCL [Concomitant]
  11. GABAPENTIN [Concomitant]
  12. PAROXETINE [Concomitant]
  13. TOPIRAMATE [Concomitant]
  14. . [Concomitant]
  15. CLONAZEPAM [Concomitant]
  16. PREDNISONE [Concomitant]
  17. ARIPIPRAZOLE [Concomitant]
  18. RISPERIDONE [Concomitant]
  19. SERTRALINE HCL [Concomitant]

REACTIONS (4)
  - CATARACT [None]
  - DISEASE PROGRESSION [None]
  - RETINITIS PIGMENTOSA [None]
  - TREATMENT FAILURE [None]
